FAERS Safety Report 10302058 (Version 1)
Quarter: 2014Q3

REPORT INFORMATION
  Report Type: Spontaneous
  Country: FR (occurrence: None)
  Receive Date: 20140709
  Receipt Date: 20140709
  Transmission Date: 20150326
  Serious: Yes (Hospitalization)
  Sender: FDA-Public Use
  Company Number: CLINIGEN-003419

PATIENT
  Age: 35 Year
  Sex: Female
  Weight: 44 kg

DRUGS (1)
  1. FOSCARNET [Suspect]
     Active Substance: FOSCARNET
     Dosage: 6 G ADMINISTERED INSTEAD OF 1.6 G INTRAVENOUS (NOT OTHERWISE SPECIFIED))
     Route: 042
     Dates: start: 20140524, end: 20140524

REACTIONS (4)
  - Paraesthesia [None]
  - Incorrect drug dosage form administered [None]
  - Chest discomfort [None]
  - Drug administration error [None]

NARRATIVE: CASE EVENT DATE: 20140524
